APPROVED DRUG PRODUCT: LUPRON DEPOT-PED KIT
Active Ingredient: LEUPROLIDE ACETATE
Strength: 11.25MG
Dosage Form/Route: POWDER;INTRAMUSCULAR
Application: N020263 | Product #005
Applicant: ABBVIE ENDOCRINE INC
Approved: Jan 21, 1994 | RLD: Yes | RS: Yes | Type: RX